FAERS Safety Report 13320737 (Version 1)
Quarter: 2017Q1

REPORT INFORMATION
  Report Type: Spontaneous
  Country: US (occurrence: US)
  Receive Date: 20170310
  Receipt Date: 20170310
  Transmission Date: 20170428
  Serious: No
  Sender: FDA-Public Use
  Company Number: None

PATIENT
  Age: 34 Year
  Sex: Female
  Weight: 96.25 kg

DRUGS (11)
  1. TYLENOL [Concomitant]
     Active Substance: ACETAMINOPHEN
  2. ACYCLOVIR. [Concomitant]
     Active Substance: ACYCLOVIR
  3. TRIAMCINOLONE ACETONIDE CREAM [Concomitant]
     Active Substance: TRIAMCINOLONE ACETONIDE
  4. NIGHTTIME SLEEP [Concomitant]
  5. ERYTHROMYCIN OPHTHALMIC OINTMENT [Concomitant]
     Active Substance: ERYTHROMYCIN
  6. TETRACYCLINE [Concomitant]
     Active Substance: TETRACYCLINE
  7. TRUBIOTIC TRIPLE ANTIBIOTIC PLUS OINTMENT [Concomitant]
  8. PREDNISOLONE ACETATE OPHTHALMIC SUSPENSION 1% [Suspect]
     Active Substance: PREDNISOLONE ACETATE
     Indication: EYE INFECTION STAPHYLOCOCCAL
     Dosage: ?          QUANTITY:L CITE?;?
     Route: 047
     Dates: start: 20170213, end: 20170228
  9. VITAMIN C [Concomitant]
     Active Substance: ASCORBIC ACID
  10. A20 YEAST [Concomitant]
  11. MONOSTAT 7 [Concomitant]

REACTIONS (1)
  - Accidental exposure to product [None]

NARRATIVE: CASE EVENT DATE: 20170214
